FAERS Safety Report 6305746-6 (Version None)
Quarter: 2009Q3

REPORT INFORMATION
  Report Type: 
  Country: None (occurrence: None)
  Receive Date: 20090812
  Receipt Date: 20080304
  Transmission Date: 20100115
  Serious: Yes (Other)
  Sender: FDA-Public Use
  Company Number: US-ASTRAZENECA-2007UW27335

PATIENT
  Age: 39 Year
  Sex: Male
  Weight: 138.3 kg

DRUGS (39)
  1. SEROQUEL [Suspect]
     Indication: DEPRESSION
     Dosage: 100 MG - 400 MG
     Route: 048
     Dates: start: 20010404
  2. SEROQUEL [Suspect]
     Indication: SLEEP DISORDER
     Dosage: 100 MG - 400 MG
     Route: 048
     Dates: start: 20010404
  3. SEROQUEL [Suspect]
     Indication: HALLUCINATION, AUDITORY
     Dosage: 100 MG - 400 MG
     Route: 048
     Dates: start: 20010404
  4. SEROQUEL [Suspect]
     Indication: MOOD SWINGS
     Dosage: 100 MG - 400 MG
     Route: 048
     Dates: start: 20010404
  5. SEROQUEL [Suspect]
     Dosage: 200 MG, 400 MG
     Route: 048
     Dates: start: 20010501
  6. SEROQUEL [Suspect]
     Dosage: 200 MG, 400 MG
     Route: 048
     Dates: start: 20010501
  7. SEROQUEL [Suspect]
     Dosage: 200 MG, 400 MG
     Route: 048
     Dates: start: 20010501
  8. SEROQUEL [Suspect]
     Dosage: 200 MG, 400 MG
     Route: 048
     Dates: start: 20010501
  9. ABILIFY [Concomitant]
     Route: 048
  10. EFFEXOR [Concomitant]
     Route: 048
     Dates: start: 20020101, end: 20040101
  11. LITHIUM CARBONATE [Concomitant]
     Dates: start: 20030101, end: 20050101
  12. WELLBUTRIN [Concomitant]
     Dates: start: 20030101
  13. TRAZODONE HCL [Concomitant]
     Indication: INSOMNIA
     Dates: start: 20010101
  14. TRAZODONE HCL [Concomitant]
     Dosage: 100 MG - 150 MG
     Dates: start: 20011023
  15. PAXIL [Concomitant]
     Indication: DEPRESSION
     Dosage: 25 MG, 37.5 MG
     Dates: start: 20010101, end: 20050101
  16. PAXIL [Concomitant]
     Dates: start: 20011023
  17. REMERON [Concomitant]
     Indication: DEPRESSION
     Route: 048
     Dates: start: 20020220
  18. REMERON [Concomitant]
     Dates: start: 20030101, end: 20040101
  19. RISPERDAL [Concomitant]
     Indication: SLEEP DISORDER
     Dosage: 1 MG - 4 MG
     Route: 048
     Dates: start: 20020101, end: 20050101
  20. RISPERDAL [Concomitant]
     Indication: HALLUCINATION, AUDITORY
     Dosage: 1 MG - 4 MG
     Route: 048
     Dates: start: 20020101, end: 20050101
  21. RISPERDAL [Concomitant]
     Indication: VISUAL IMPAIRMENT
     Dosage: 1 MG - 4 MG
     Route: 048
     Dates: start: 20020101, end: 20050101
  22. RISPERDAL [Concomitant]
     Dosage: 1 MG - 4 MG
     Dates: start: 20020220
  23. RISPERDAL [Concomitant]
     Dosage: 1 MG - 4 MG
     Dates: start: 20020220
  24. RISPERDAL [Concomitant]
     Dosage: 1 MG - 4 MG
     Dates: start: 20020220
  25. LEXAPRO [Concomitant]
     Indication: DEPRESSION
     Dosage: 10 MG - 20 MG
     Route: 048
     Dates: start: 20050706
  26. LEXAPRO [Concomitant]
     Indication: IRRITABILITY
     Dosage: 10 MG - 20 MG
     Route: 048
     Dates: start: 20050706
  27. COGENTIN [Concomitant]
     Dates: start: 20050706
  28. THORAZINE [Concomitant]
     Indication: AGITATION
     Dates: start: 20051019
  29. THORAZINE [Concomitant]
     Dates: start: 20060101
  30. GEODON [Concomitant]
     Indication: MOOD SWINGS
     Route: 048
     Dates: start: 20050101
  31. GEODON [Concomitant]
     Indication: HALLUCINATION, AUDITORY
     Route: 048
     Dates: start: 20050101
  32. GEODON [Concomitant]
     Indication: PARANOIA
     Route: 048
     Dates: start: 20050101
  33. GEODON [Concomitant]
     Dosage: 80 MG - 160 MG
     Dates: start: 20060403
  34. GEODON [Concomitant]
     Dosage: 80 MG - 160 MG
     Dates: start: 20060403
  35. GEODON [Concomitant]
     Dosage: 80 MG - 160 MG
     Dates: start: 20060403
  36. DARVOCET-N 100 [Concomitant]
     Dosage: 650, TWO TIMES A DAY
     Route: 048
     Dates: start: 20060822
  37. CLONIDINE [Concomitant]
     Route: 048
     Dates: start: 20061004
  38. DEPAKOTE ER [Concomitant]
     Route: 048
     Dates: start: 20061004
  39. LABETALOL HCL [Concomitant]
     Route: 048
     Dates: start: 20061004

REACTIONS (8)
  - AUTONOMIC NEUROPATHY [None]
  - BLOOD CHOLESTEROL INCREASED [None]
  - DIABETES MELLITUS [None]
  - DIABETIC COMA [None]
  - DIABETIC NEUROPATHY [None]
  - HEAD INJURY [None]
  - NEUROPATHY PERIPHERAL [None]
  - TYPE 2 DIABETES MELLITUS [None]
